FAERS Safety Report 8325541-6 (Version None)
Quarter: 2012Q2

REPORT INFORMATION
  Report Type: 
  Country: None (occurrence: None)
  Receive Date: 20120501
  Receipt Date: 20120418
  Transmission Date: 20120825
  Serious: Yes (Life-Threatening, Hospitalization, Other)
  Sender: FDA-Public Use
  Company Number: CN-JNJFOC-20110700640

PATIENT
  Sex: Male

DRUGS (6)
  1. REMICADE [Suspect]
     Dosage: ONCE IN 32 (UNSPECIFIED)
     Route: 042
     Dates: start: 20110302
  2. REMICADE [Suspect]
     Route: 042
  3. DEXAMETHASONE [Concomitant]
     Indication: PREMEDICATION
     Route: 042
     Dates: start: 20110622, end: 20110622
  4. REMICADE [Suspect]
     Dosage: 0NCE IN 32 (UNSPECIFIED)
     Route: 042
     Dates: start: 20110622, end: 20110622
  5. REMICADE [Suspect]
     Indication: ANKYLOSING SPONDYLITIS
     Dosage: FIFTH INFUSION
     Route: 042
  6. REMICADE [Suspect]
     Dosage: SEVENTH INFUSION
     Route: 042
     Dates: start: 20110201

REACTIONS (9)
  - INFUSION RELATED REACTION [None]
  - HYPERHIDROSIS [None]
  - LIP DISCOLOURATION [None]
  - TONGUE DISCOLOURATION [None]
  - FLUSHING [None]
  - LARYNGEAL OEDEMA [None]
  - PALPITATIONS [None]
  - PYREXIA [None]
  - DYSPNOEA [None]
